FAERS Safety Report 6308128-6 (Version None)
Quarter: 2009Q3

REPORT INFORMATION
  Report Type: 
  Country: None (occurrence: None)
  Receive Date: 20090813
  Receipt Date: 20090731
  Transmission Date: 20100115
  Serious: Yes (Disabling)
  Sender: FDA-Public Use
  Company Number: FR-CELGENEUS-056-20785-09080087

PATIENT
  Sex: Male
  Weight: 68 kg

DRUGS (6)
  1. THALIDOMIDE [Suspect]
     Route: 048
     Dates: start: 20061017
  2. THALIDOMIDE [Suspect]
     Route: 048
     Dates: end: 20070311
  3. VELCADE [Suspect]
     Route: 051
     Dates: start: 20061017
  4. VELCADE [Suspect]
     Route: 051
     Dates: end: 20070311
  5. DEXAMETHASONE [Concomitant]
     Route: 065
     Dates: start: 20061017, end: 20070311
  6. FORLAX [Concomitant]
     Indication: DRUG USE FOR UNKNOWN INDICATION
     Route: 065
     Dates: start: 20061028

REACTIONS (3)
  - AUTONOMIC NERVOUS SYSTEM IMBALANCE [None]
  - GAIT DISTURBANCE [None]
  - PERIPHERAL SENSORY NEUROPATHY [None]
